FAERS Safety Report 18940496 (Version 45)
Quarter: 2025Q4

REPORT INFORMATION
  Report Type: Report from Study
  Country: CO (occurrence: CO)
  Receive Date: 20210225
  Receipt Date: 20251117
  Transmission Date: 20260118
  Serious: Yes (Hospitalization, Other)
  Sender: TAKEDA
  Company Number: CO-TAKEDA-2021TUS011055

PATIENT
  Age: 12 Year
  Sex: Male
  Weight: 34 kg

DRUGS (11)
  1. HUMAN IMMUNOGLOBULIN G\HYALURONIDASE RECOMBINANT HUMAN [Suspect]
     Active Substance: HUMAN IMMUNOGLOBULIN G\HYALURONIDASE (HUMAN RECOMBINANT)
     Indication: Primary immunodeficiency syndrome
     Dosage: 10 GRAM, 2/MONTH
     Dates: start: 20201120
  2. HUMAN IMMUNOGLOBULIN G\HYALURONIDASE RECOMBINANT HUMAN [Suspect]
     Active Substance: HUMAN IMMUNOGLOBULIN G\HYALURONIDASE (HUMAN RECOMBINANT)
     Dosage: 20 GRAM, Q2WEEKS
     Dates: start: 20220402
  3. HUMAN IMMUNOGLOBULIN G\HYALURONIDASE RECOMBINANT HUMAN [Suspect]
     Active Substance: HUMAN IMMUNOGLOBULIN G\HYALURONIDASE (HUMAN RECOMBINANT)
     Dosage: 10 GRAM, Q2WEEKS
  4. HUMAN IMMUNOGLOBULIN G\HYALURONIDASE RECOMBINANT HUMAN [Suspect]
     Active Substance: HUMAN IMMUNOGLOBULIN G\HYALURONIDASE (HUMAN RECOMBINANT)
     Dosage: 20 GRAM, 1/WEEK
  5. HUMAN IMMUNOGLOBULIN G\HYALURONIDASE RECOMBINANT HUMAN [Suspect]
     Active Substance: HUMAN IMMUNOGLOBULIN G\HYALURONIDASE (HUMAN RECOMBINANT)
     Dosage: 10 GRAM
  6. HUMAN IMMUNOGLOBULIN G\HYALURONIDASE RECOMBINANT HUMAN [Suspect]
     Active Substance: HUMAN IMMUNOGLOBULIN G\HYALURONIDASE (HUMAN RECOMBINANT)
     Dosage: 10 GRAM, Q2WEEKS
  7. HUMAN IMMUNOGLOBULIN G\HYALURONIDASE RECOMBINANT HUMAN [Suspect]
     Active Substance: HUMAN IMMUNOGLOBULIN G\HYALURONIDASE (HUMAN RECOMBINANT)
     Dosage: 20 GRAM, MONTHLY
  8. HUMAN IMMUNOGLOBULIN G\HYALURONIDASE RECOMBINANT HUMAN [Suspect]
     Active Substance: HUMAN IMMUNOGLOBULIN G\HYALURONIDASE (HUMAN RECOMBINANT)
     Dosage: 20 GRAM, Q2WEEKS
  9. HUMAN IMMUNOGLOBULIN G\HYALURONIDASE RECOMBINANT HUMAN [Suspect]
     Active Substance: HUMAN IMMUNOGLOBULIN G\HYALURONIDASE (HUMAN RECOMBINANT)
     Dosage: 10 GRAM, Q3WEEKS
  10. HUMAN IMMUNOGLOBULIN G\HYALURONIDASE RECOMBINANT HUMAN [Suspect]
     Active Substance: HUMAN IMMUNOGLOBULIN G\HYALURONIDASE (HUMAN RECOMBINANT)
     Dosage: 20 GRAM, Q3WEEKS
  11. Hiderax [Concomitant]
     Dosage: UNK

REACTIONS (67)
  - Asphyxia [Not Recovered/Not Resolved]
  - Pneumonia [Unknown]
  - Haemorrhage [Recovering/Resolving]
  - Seizure [Recovered/Resolved]
  - Syncope [Recovered/Resolved]
  - Dysuria [Not Recovered/Not Resolved]
  - Pain [Not Recovered/Not Resolved]
  - Cyanosis [Unknown]
  - Pleural effusion [Not Recovered/Not Resolved]
  - Lung abscess [Unknown]
  - Oxygen saturation abnormal [Recovered/Resolved]
  - Nasopharyngitis [Unknown]
  - Oxygen saturation decreased [Recovered/Resolved]
  - Malaise [Not Recovered/Not Resolved]
  - Dyspnoea [Unknown]
  - Pyrexia [Not Recovered/Not Resolved]
  - Salivary hypersecretion [Not Recovered/Not Resolved]
  - Speech disorder [Unknown]
  - Inappropriate schedule of product administration [Not Recovered/Not Resolved]
  - Drug intolerance [Not Recovered/Not Resolved]
  - Injury [Recovering/Resolving]
  - Oropharyngeal plaque [Recovering/Resolving]
  - Scar [Unknown]
  - Dyskinesia [Not Recovered/Not Resolved]
  - Crying [Recovered/Resolved]
  - Otorrhoea [Recovered/Resolved]
  - Influenza [Recovering/Resolving]
  - Pruritus allergic [Recovering/Resolving]
  - Restlessness [Recovered/Resolved]
  - Ear infection [Recovered/Resolved]
  - Productive cough [Not Recovered/Not Resolved]
  - Increased viscosity of upper respiratory secretion [Unknown]
  - Weight increased [Not Recovered/Not Resolved]
  - Body height increased [Not Recovered/Not Resolved]
  - Incorrect dose administered [Unknown]
  - Product preparation issue [Recovered/Resolved]
  - Treatment noncompliance [Unknown]
  - Product prescribing issue [Unknown]
  - General physical health deterioration [Unknown]
  - Product availability issue [Unknown]
  - Abdominal mass [Not Recovered/Not Resolved]
  - Product dose omission issue [Unknown]
  - Infusion site inflammation [Recovered/Resolved]
  - Infusion related reaction [Recovered/Resolved]
  - Product use issue [Unknown]
  - Therapeutic response decreased [Unknown]
  - Weight decreased [Unknown]
  - Catheter site discharge [Unknown]
  - Hiccups [Recovered/Resolved]
  - Nail discolouration [Recovered/Resolved]
  - Eating disorder [Recovered/Resolved]
  - Eye colour change [Recovered/Resolved]
  - Insurance issue [Unknown]
  - Infusion site irritation [Unknown]
  - Constipation [Recovered/Resolved]
  - Otitis media [Unknown]
  - Product prescribing error [Unknown]
  - Cough [Not Recovered/Not Resolved]
  - Irritability [Recovered/Resolved]
  - Conjunctivitis [Recovering/Resolving]
  - Back pain [Recovered/Resolved]
  - Diarrhoea [Unknown]
  - Rash [Not Recovered/Not Resolved]
  - Tremor [Not Recovered/Not Resolved]
  - Hypersensitivity [Recovering/Resolving]
  - Infusion site erythema [Recovered/Resolved]
  - Infusion site pain [Unknown]

NARRATIVE: CASE EVENT DATE: 20210228
